FAERS Safety Report 5374514-4 (Version None)
Quarter: 2007Q2

REPORT INFORMATION
  Report Type: 
  Country: None (occurrence: None)
  Receive Date: 20070629
  Receipt Date: 20070621
  Transmission Date: 20071010
  Serious: Yes (Life-Threatening, Other)
  Sender: FDA-Public Use
  Company Number: HQWYE848206APR07

PATIENT
  Sex: Female
  Weight: 40 kg

DRUGS (5)
  1. MYLOTARG [Suspect]
     Indication: ACUTE MYELOID LEUKAEMIA
     Route: 041
     Dates: start: 20070208, end: 20070208
  2. MYLOTARG [Suspect]
     Route: 041
     Dates: start: 20070222, end: 20070222
  3. DIFLUCAN [Concomitant]
     Dosage: 200MG/DAY
     Route: 048
     Dates: start: 20070128, end: 20070319
  4. BAKTAR [Concomitant]
     Dosage: 1 DOSE FORM/DAY
     Route: 048
     Dates: start: 20070128, end: 20070319
  5. LEVOFLOXACIN [Concomitant]
     Dosage: 200MG/DAY
     Route: 048
     Dates: start: 20070208, end: 20070319

REACTIONS (7)
  - BLAST CELLS PRESENT [None]
  - CHILLS [None]
  - CONDITION AGGRAVATED [None]
  - FEBRILE NEUTROPENIA [None]
  - HEPATITIS [None]
  - NEUTROPHIL COUNT DECREASED [None]
  - WHITE BLOOD CELL COUNT DECREASED [None]
